FAERS Safety Report 8037475-5 (Version None)
Quarter: 2012Q1

REPORT INFORMATION
  Report Type: 
  Country: None (occurrence: None)
  Receive Date: 20120111
  Receipt Date: 20120103
  Transmission Date: 20120608
  Serious: Yes (Hospitalization)
  Sender: FDA-Public Use
  Company Number: US-PFIZER INC-2012001756

PATIENT
  Sex: Female
  Weight: 81.633 kg

DRUGS (4)
  1. GEODON [Suspect]
     Indication: DEPRESSION
     Dosage: 40 MG, 2X/DAY
     Route: 048
     Dates: end: 20111001
  2. PROZAC [Suspect]
     Indication: MOOD SWINGS
     Dosage: 20 MG, 1X/DAY
     Route: 048
     Dates: start: 20110801, end: 20111016
  3. PROZAC [Suspect]
     Indication: DEPRESSION
  4. GEODON [Suspect]
     Indication: MOOD SWINGS
     Dosage: 40 MG, 1X/DAY
     Route: 048
     Dates: start: 20101001, end: 20111001

REACTIONS (10)
  - OVERDOSE [None]
  - RED BLOOD CELL COUNT DECREASED [None]
  - INSOMNIA [None]
  - HAEMOGLOBIN DECREASED [None]
  - MENTAL IMPAIRMENT [None]
  - HYPERTENSION [None]
  - ANXIETY [None]
  - WHITE BLOOD CELL COUNT DECREASED [None]
  - NERVOUSNESS [None]
  - STRESS [None]
